FAERS Safety Report 17335183 (Version 9)
Quarter: 2022Q2

REPORT INFORMATION
  Report Type: Report from Study
  Country: None (occurrence: US)
  Receive Date: 20200128
  Receipt Date: 20220412
  Transmission Date: 20220721
  Serious: Yes (Hospitalization, Other)
  Sender: FDA-Public Use
  Company Number: US-AKCEA THERAPEUTICS-2020IS001046

PATIENT
  Age: 55 Year
  Sex: Male

DRUGS (3)
  1. TEGSEDI [Suspect]
     Active Substance: INOTERSEN SODIUM
     Indication: Hereditary neuropathic amyloidosis
     Route: 058
     Dates: start: 20191103
  2. DEVICE [Suspect]
     Active Substance: DEVICE
  3. TEGSEDI [Suspect]
     Active Substance: INOTERSEN SODIUM
     Route: 058
     Dates: start: 20200308

REACTIONS (7)
  - Glomerulonephritis [Unknown]
  - Nephrolithiasis [Unknown]
  - Kidney infection [Unknown]
  - Hospitalisation [Unknown]
  - Urine protein/creatinine ratio increased [Recovered/Resolved]
  - Blood urine present [Unknown]
  - Thrombocytopenia [Unknown]
